FAERS Safety Report 6880297-9 (Version None)
Quarter: 2010Q3

REPORT INFORMATION
  Report Type: 
  Country: None (occurrence: None)
  Receive Date: 20100728
  Receipt Date: 20100721
  Transmission Date: 20110219
  Serious: Yes (Life-Threatening)
  Sender: FDA-Public Use
  Company Number: CA-SANOFI-AVENTIS-2010SA043010

PATIENT
  Age: 52 Year
  Sex: Male

DRUGS (13)
  1. ELOXATIN [Suspect]
     Indication: COLORECTAL CANCER
     Route: 041
  2. ELOXATIN [Suspect]
     Route: 041
     Dates: start: 20100721, end: 20100721
  3. LEUCOVORIN CALCIUM [Concomitant]
     Indication: COLORECTAL CANCER
     Route: 041
  4. FLUOROURACIL [Concomitant]
     Indication: COLORECTAL CANCER
     Route: 041
  5. DIPHENHYDRAMINE [Concomitant]
     Indication: PREMEDICATION
  6. DIPHENHYDRAMINE [Concomitant]
     Indication: ANAPHYLACTIC REACTION
  7. DIPHENHYDRAMINE [Concomitant]
     Dates: start: 20100721
  8. DIPHENHYDRAMINE [Concomitant]
     Dates: start: 20100721
  9. DEXAMETHASONE [Concomitant]
     Indication: PREMEDICATION
  10. DEXAMETHASONE [Concomitant]
     Indication: ANAPHYLACTIC REACTION
  11. DEXAMETHASONE [Concomitant]
     Dates: start: 20100721, end: 20100721
  12. DEXAMETHASONE [Concomitant]
     Dates: start: 20100721, end: 20100721
  13. ZANTAC [Concomitant]
     Indication: PREMEDICATION

REACTIONS (3)
  - ANAPHYLACTIC REACTION [None]
  - CARDIAC DISORDER [None]
  - HYPOTENSION [None]
